FAERS Safety Report 6027335-3 (Version None)
Quarter: 2009Q1

REPORT INFORMATION
  Report Type: 
  Country: None (occurrence: None)
  Receive Date: 20090105
  Receipt Date: 20081226
  Transmission Date: 20090719
  Serious: Yes (Other)
  Sender: FDA-Public Use
  Company Number: B0548523A

PATIENT
  Age: 79 Year
  Sex: Female

DRUGS (1)
  1. SAWACILLIN [Suspect]
     Indication: DRUG USE FOR UNKNOWN INDICATION
     Route: 048

REACTIONS (2)
  - GENERALISED ERYTHEMA [None]
  - HAEMORRHAGE [None]
